FAERS Safety Report 9198230 (Version 1)
Quarter: 2013Q1

REPORT INFORMATION
  Report Type: Spontaneous
  Country: US (occurrence: US)
  Receive Date: 20130329
  Receipt Date: 20130329
  Transmission Date: 20140127
  Serious: No
  Sender: FDA-Public Use
  Company Number: US-BIOGENIDEC-2013BI027320

PATIENT
  Sex: Male

DRUGS (3)
  1. TYSABRI [Suspect]
     Indication: MULTIPLE SCLEROSIS
     Route: 042
     Dates: start: 20081008, end: 20110112
  2. TYSABRI [Suspect]
     Indication: MULTIPLE SCLEROSIS
     Route: 042
     Dates: start: 20111122
  3. ANDOCET 10/325MG [Concomitant]
     Indication: BACK PAIN

REACTIONS (3)
  - Weight decreased [Recovered/Resolved with Sequelae]
  - Urinary tract infection [Recovered/Resolved]
  - Staphylococcal skin infection [Recovered/Resolved]
